FAERS Safety Report 22091079 (Version 7)
Quarter: 2024Q2

REPORT INFORMATION
  Report Type: Report from Study
  Country: US (occurrence: US)
  Receive Date: 20230314
  Receipt Date: 20240629
  Transmission Date: 20240716
  Serious: Yes (Other)
  Sender: FDA-Public Use
  Company Number: US-TAKEDA-US201908572

PATIENT
  Sex: Male

DRUGS (2)
  1. HUMAN IMMUNOGLOBULIN G\HYALURONIDASE RECOMBINANT HUMAN [Suspect]
     Active Substance: HUMAN IMMUNOGLOBULIN G\HYALURONIDASE (HUMAN RECOMBINANT)
     Indication: Immunodeficiency common variable
     Dosage: UNK UNK, MONTHLY
     Route: 058
  2. HUMAN IMMUNOGLOBULIN G\HYALURONIDASE RECOMBINANT HUMAN [Suspect]
     Active Substance: HUMAN IMMUNOGLOBULIN G\HYALURONIDASE (HUMAN RECOMBINANT)
     Indication: Primary immunodeficiency syndrome
     Dosage: 30 GRAM, MONTHLY
     Route: 065

REACTIONS (18)
  - Gastrointestinal fungal infection [Unknown]
  - Colitis [Unknown]
  - Vasculitis [Unknown]
  - Pain [Unknown]
  - Viral infection [Unknown]
  - Influenza like illness [Unknown]
  - Gastrointestinal disorder [Recovering/Resolving]
  - Depression [Recovering/Resolving]
  - COVID-19 [Recovered/Resolved]
  - Nasopharyngitis [Unknown]
  - Urinary tract infection [Unknown]
  - Ulcer [Recovered/Resolved]
  - Giardiasis [Recovering/Resolving]
  - Stress [Unknown]
  - Migraine [Unknown]
  - Fatigue [Recovering/Resolving]
  - Headache [Unknown]
  - Inappropriate schedule of product administration [Recovered/Resolved]
